FAERS Safety Report 20205960 (Version 1)
Quarter: 2021Q4

REPORT INFORMATION
  Report Type: Spontaneous
  Country: US (occurrence: None)
  Receive Date: 20211217
  Receipt Date: 20211217
  Transmission Date: 20220303
  Serious: No
  Sender: FDA-Public Use
  Company Number: None

PATIENT
  Age: 28 Year
  Sex: Female

DRUGS (1)
  1. QSYMIA [Suspect]
     Active Substance: PHENTERMINE HYDROCHLORIDE\TOPIRAMATE
     Indication: Obesity
     Dosage: FREQUENCY : DAILY; 15MG/92MG?
     Route: 048
     Dates: start: 20201005

REACTIONS (2)
  - Pregnancy test positive [None]
  - Maternal exposure during pregnancy [None]

NARRATIVE: CASE EVENT DATE: 20211216
